FAERS Safety Report 4338813-7 (Version None)
Quarter: 2004Q2

REPORT INFORMATION
  Report Type: 
  Country: None (occurrence: None)
  Receive Date: 20040409
  Receipt Date: 20040330
  Transmission Date: 20050107
  Serious: Yes (Other)
  Sender: FDA-Public Use
  Company Number: 2004022075

PATIENT
  Sex: Female

DRUGS (2)
  1. ZOLOFT [Suspect]
     Indication: ILL-DEFINED DISORDER
     Dosage: ORAL
     Route: 048
     Dates: end: 20040304
  2. ANALGESICS (ANALGESICS) [Concomitant]

REACTIONS (5)
  - FALL [None]
  - HEAD INJURY [None]
  - HIP FRACTURE [None]
  - HYPONATRAEMIA [None]
  - VERTIGO [None]
